FAERS Safety Report 16736146 (Version 2)
Quarter: 2019Q4

REPORT INFORMATION
  Report Type: Spontaneous
  Country: US (occurrence: US)
  Receive Date: 20190823
  Receipt Date: 20191002
  Transmission Date: 20200122
  Serious: Yes (Other)
  Sender: FDA-Public Use
  Company Number: US-SA-2019SA222265

PATIENT
  Age: 50 Year
  Sex: Female
  Weight: 78 kg

DRUGS (11)
  1. PLATINOL [Concomitant]
     Active Substance: CISPLATIN
     Indication: CHEMOTHERAPY
  2. TAXOTERE [Suspect]
     Active Substance: DOCETAXEL
     Dosage: 20 MG, Q3W
     Route: 042
     Dates: start: 20080430, end: 20080430
  3. HYDROCODONE [Concomitant]
     Active Substance: HYDROCODONE
     Dosage: UNK
     Dates: start: 20050101
  4. TAXOTERE [Suspect]
     Active Substance: DOCETAXEL
     Indication: NON-SMALL CELL LUNG CANCER
     Dosage: 20 MG, Q3W
     Route: 042
     Dates: start: 20080101, end: 20080101
  5. CISPLATIN. [Concomitant]
     Active Substance: CISPLATIN
     Indication: NON-SMALL CELL LUNG CANCER
     Dosage: UNK UNK, Q3W
     Dates: start: 20080101, end: 20080101
  6. CISPLATIN. [Concomitant]
     Active Substance: CISPLATIN
     Dosage: UNK UNK, Q3W
     Dates: start: 20080430, end: 20080430
  7. PARAPLATIN [Concomitant]
     Active Substance: CARBOPLATIN
     Indication: CHEMOTHERAPY
  8. TARCEVA [Concomitant]
     Active Substance: ERLOTINIB HYDROCHLORIDE
     Dosage: UNK UNK, Q3W
     Dates: start: 20080430, end: 20080430
  9. IRBESARTAN. [Concomitant]
     Active Substance: IRBESARTAN
     Dosage: UNK
     Dates: start: 20050101
  10. AMLODIPINE [Concomitant]
     Active Substance: AMLODIPINE BESYLATE
     Dosage: UNK
     Dates: start: 20050101
  11. TARCEVA [Concomitant]
     Active Substance: ERLOTINIB HYDROCHLORIDE
     Indication: NON-SMALL CELL LUNG CANCER
     Dosage: UNK UNK, Q3W
     Dates: start: 20080101, end: 20080101

REACTIONS (1)
  - Alopecia [Not Recovered/Not Resolved]

NARRATIVE: CASE EVENT DATE: 20080101
